FAERS Safety Report 8459959-8 (Version None)
Quarter: 2012Q2

REPORT INFORMATION
  Report Type: 
  Country: None (occurrence: None)
  Receive Date: 20120622
  Receipt Date: 20120620
  Transmission Date: 20120825
  Serious: Yes (Life-Threatening, Other)
  Sender: FDA-Public Use
  Company Number: PHHY2012BR053361

PATIENT
  Sex: Female

DRUGS (1)
  1. DIOVAN HCT [Suspect]
     Indication: HYPERTENSION
     Dosage: 1 DF (VALS 160 MG, HYDR 12.5 MG), A DAY
     Dates: start: 20111001

REACTIONS (4)
  - SKIN DISCOLOURATION [None]
  - FEELING ABNORMAL [None]
  - PRURITUS [None]
  - HYPERSENSITIVITY [None]
